FAERS Safety Report 4344483-4 (Version None)
Quarter: 2004Q2

REPORT INFORMATION
  Report Type: 
  Country: None (occurrence: None)
  Receive Date: 20040419
  Receipt Date: 20040302
  Transmission Date: 20050107
  Serious: Yes (Death, Hospitalization)
  Sender: FDA-Public Use
  Company Number: A-CH2003-04133

PATIENT
  Age: 67 Year
  Sex: Female
  Weight: 72 kg

DRUGS (2)
  1. TRACLEER [Suspect]
     Indication: PULMONARY HYPERTENSION
     Dosage: SEE IMAGE
     Route: 048
     Dates: end: 20031215
  2. TRACLEER [Suspect]
     Indication: PULMONARY HYPERTENSION
     Dosage: SEE IMAGE
     Route: 048
     Dates: start: 19990807

REACTIONS (9)
  - ATRIOVENTRICULAR BLOCK FIRST DEGREE [None]
  - BUNDLE BRANCH BLOCK LEFT [None]
  - CARDIAC FAILURE [None]
  - CARDIOGENIC SHOCK [None]
  - DEVICE FAILURE [None]
  - HYPOTENSION [None]
  - PROCEDURAL COMPLICATION [None]
  - RESPIRATORY FAILURE [None]
  - VENOUS OCCLUSION [None]
